FAERS Safety Report 8790068 (Version 3)
Quarter: 2012Q4

REPORT INFORMATION
  Report Type: 
  Country: US (occurrence: US)
  Receive Date: 20120917
  Receipt Date: 20121009
  Transmission Date: 20130627
  Serious: Yes (Other)
  Sender: FDA-Public Use
  Company Number: US-PFIZER INC-2012225961

PATIENT
  Age: 37 Year
  Sex: Male
  Weight: 68 kg

DRUGS (1)
  1. BENEFIX [Suspect]
     Indication: HAEMORRHAGE PROPHYLAXIS
     Dosage: 119 IU, as needed

REACTIONS (1)
  - Activated partial thromboplastin time abnormal [Unknown]
